FAERS Safety Report 6027296-7 (Version None)
Quarter: 2008Q4

REPORT INFORMATION
  Report Type: 
  Country: None (occurrence: None)
  Receive Date: 20081231
  Receipt Date: 20081231
  Transmission Date: 20090506
  Serious: Yes (Life-Threatening)
  Sender: FDA-Public Use
  Company Number: None

PATIENT
  Age: 49 Year
  Sex: Female
  Weight: 79.3795 kg

DRUGS (2)
  1. PHENTERMINE [Suspect]
     Indication: WEIGHT DECREASED
     Dosage: 1 TABLET A.M. PO
     Route: 048
     Dates: start: 20060701, end: 20071001
  2. PHENTERMINE [Suspect]
     Indication: WEIGHT DECREASED
     Dosage: 1 TABLET A.M. PO
     Route: 048
     Dates: start: 20080601, end: 20081115

REACTIONS (5)
  - EXTRASYSTOLES [None]
  - FEELING ABNORMAL [None]
  - HEART RATE IRREGULAR [None]
  - IRRITABILITY [None]
  - STRESS [None]
